FAERS Safety Report 5131061-2 (Version None)
Quarter: 2006Q3

REPORT INFORMATION
  Report Type: 
  Country: None (occurrence: None)
  Receive Date: 20060829
  Receipt Date: 20060725
  Transmission Date: 20061208
  Serious: No
  Sender: FDA-Public Use
  Company Number: S06-USA-02839-01

PATIENT
  Age: 79 Year
  Sex: Female

DRUGS (3)
  1. CAMPRAL [Suspect]
     Indication: ALCOHOLISM
     Dosage: 666 MG TID PO
     Route: 048
     Dates: start: 20060718
  2. PROZAC (FLUOCETINE HYDROCHLORIDE) [Concomitant]
  3. DEPAKOTE [Concomitant]

REACTIONS (1)
  - STOMACH DISCOMFORT [None]
